FAERS Safety Report 8287605-5 (Version None)
Quarter: 2012Q2

REPORT INFORMATION
  Report Type: 
  Country: None (occurrence: None)
  Receive Date: 20120416
  Receipt Date: 20120403
  Transmission Date: 20120825
  Serious: Yes (Other)
  Sender: FDA-Public Use
  Company Number: DE-TEVA-331670GER

PATIENT
  Sex: Female

DRUGS (2)
  1. CLARITHROMYCIN [Suspect]
     Dosage: 500 MILLIGRAM;
     Route: 048
     Dates: start: 20111118, end: 20111130
  2. CLARITHROMYCIN [Suspect]
     Dosage: 1000 MILLIGRAM;
     Route: 048
     Dates: start: 20111201, end: 20120101

REACTIONS (2)
  - NEURALGIA [None]
  - PARESIS [None]
